FAERS Safety Report 13121692 (Version 7)
Quarter: 2020Q4

REPORT INFORMATION
  Report Type: Spontaneous
  Country: US (occurrence: US)
  Receive Date: 20170117
  Receipt Date: 20201005
  Transmission Date: 20210113
  Serious: Yes (Other)
  Sender: FDA-Public Use
  Company Number: US-PFIZER INC-2017017192

PATIENT
  Age: 58 Year
  Sex: Male
  Weight: 122 kg

DRUGS (4)
  1. LYRICA [Suspect]
     Active Substance: PREGABALIN
     Indication: NEUROPATHY PERIPHERAL
     Dosage: 100 MG, 2X/DAY(ONE PILL IN THE MORNING AND ONE IN THE EVENING) (TAKE 2 CAPSULES TWICE A DAY DURING)
     Route: 048
     Dates: start: 2015
  2. LYRICA [Suspect]
     Active Substance: PREGABALIN
     Dosage: 200 MG, 2X/DAY(LYRICA 100 MG 2 CAPSULES IN THE MORNING AND 2 CAPSULES IN THE EVENING)
  3. LYRICA [Suspect]
     Active Substance: PREGABALIN
     Dosage: UNK, 2X/DAY(2 CAPSULES IN THE MORNING AND 3 CAPSULES IN THE EVENING)
  4. LYRICA [Suspect]
     Active Substance: PREGABALIN
     Dosage: 100 MG, 2X/DAY(MAY TAKE UP TO 2 CAPSULES 2 TIMES A DAY)

REACTIONS (4)
  - Diabetes mellitus [Unknown]
  - Fall [Unknown]
  - Rotator cuff syndrome [Unknown]
  - Upper limb fracture [Unknown]

NARRATIVE: CASE EVENT DATE: 201505
